FAERS Safety Report 4852872-4 (Version None)
Quarter: 2005Q4

REPORT INFORMATION
  Report Type: 
  Country: None (occurrence: None)
  Receive Date: 20051212
  Receipt Date: 20051128
  Transmission Date: 20060501
  Serious: No
  Sender: FDA-Public Use
  Company Number: US200512000105

PATIENT
  Age: 50 Year
  Sex: Female
  Weight: 99.7913 kg

DRUGS (7)
  1. ZYPREXA [Suspect]
     Indication: SCHIZOPHRENIA, PARANOID TYPE
     Dosage: 7.5 MG EACH EVENING ORAL
     Route: 048
     Dates: start: 20010202, end: 20030909
  2. TRAZODONE HCL [Concomitant]
  3. DEPAKOTE [Concomitant]
  4. LEVOXYL [Concomitant]
  5. DIOVAN ^CIBA-GEIGY^ (VALSARTAN) [Concomitant]
  6. VITAMIN E [Concomitant]
  7. CALCIUM CARBONATE (CALCIUM CARBONATE) [Concomitant]

REACTIONS (3)
  - DIABETES MELLITUS NON-INSULIN-DEPENDENT [None]
  - IRON DEFICIENCY ANAEMIA [None]
  - METRORRHAGIA [None]
